FAERS Safety Report 20166287 (Version 3)
Quarter: 2022Q1

REPORT INFORMATION
  Report Type: Report from Study
  Country: CN (occurrence: None)
  Receive Date: 20211209
  Receipt Date: 20220325
  Transmission Date: 20220423
  Serious: Yes (Death, Hospitalization)
  Sender: FDA-Public Use
  Company Number: 2021A851375

PATIENT
  Age: 21779 Day
  Sex: Male

DRUGS (63)
  1. DURVALUMAB [Suspect]
     Active Substance: DURVALUMAB
     Indication: Non-small cell lung cancer
     Route: 042
     Dates: start: 20211115, end: 20211115
  2. TREMELIMUMAB [Suspect]
     Active Substance: TREMELIMUMAB
     Indication: Non-small cell lung cancer
     Route: 042
     Dates: start: 20211115, end: 20211115
  3. GEMCITABINE [Suspect]
     Active Substance: GEMCITABINE
     Indication: Non-small cell lung cancer
     Route: 042
     Dates: start: 20211115, end: 20211115
  4. GEMCITABINE [Suspect]
     Active Substance: GEMCITABINE
     Indication: Non-small cell lung cancer
     Route: 042
     Dates: start: 20211123, end: 20211123
  5. CARBOPLATIN [Suspect]
     Active Substance: CARBOPLATIN
     Indication: Non-small cell lung cancer
     Dosage: 5.0 AUC EVERY THREE WEEKS
     Route: 042
     Dates: start: 20211115, end: 20211115
  6. TERAZOSIN HYDROCHLORIDE TABLETS [Concomitant]
     Indication: Benign prostatic hyperplasia
     Dates: start: 20211111, end: 20211126
  7. CALCII DIBUTYRY-LADENOSI NI CYCLOPHOSPHAS FOR INJECTION [Concomitant]
     Indication: Cardiomyopathy
     Dates: start: 20211112, end: 20211121
  8. PIRACETAM FOR INJECTION [Concomitant]
     Indication: Hypertrophy
     Dates: start: 20211112, end: 20211124
  9. OMEPRAZOLE SODIUM FOR INJECTION [Concomitant]
     Indication: Protein total
     Dates: start: 20211115, end: 20211119
  10. OMEPRAZOLE SODIUM FOR INJECTION [Concomitant]
     Indication: Protein total
     Dates: start: 20211123, end: 20211124
  11. DIAMMONIUM GLYCYRRHIZINATE INJECTION [Concomitant]
     Indication: Treatment delayed
     Dates: start: 20211115, end: 20211119
  12. DIAMMONIUM GLYCYRRHIZINATE INJECTION [Concomitant]
     Indication: Prophylaxis
     Dates: start: 20211115, end: 20211119
  13. DIAMMONIUM GLYCYRRHIZINATE INJECTION [Concomitant]
     Indication: Treatment delayed
     Dates: start: 20211123, end: 20211124
  14. DIAMMONIUM GLYCYRRHIZINATE INJECTION [Concomitant]
     Indication: Prophylaxis
     Dates: start: 20211123, end: 20211124
  15. METOCLOPRAMIDEDI HYDROCHLORIDE INJECTION [Concomitant]
     Indication: Prophylaxis of nausea and vomiting
     Dates: start: 20211115, end: 20211119
  16. METOCLOPRAMIDEDI HYDROCHLORIDE INJECTION [Concomitant]
     Indication: Treatment delayed
     Dates: start: 20211115, end: 20211119
  17. METOCLOPRAMIDEDI HYDROCHLORIDE INJECTION [Concomitant]
     Indication: Prophylaxis of nausea and vomiting
     Dates: start: 20211123, end: 20211124
  18. METOCLOPRAMIDEDI HYDROCHLORIDE INJECTION [Concomitant]
     Indication: Treatment delayed
     Dates: start: 20211123, end: 20211124
  19. METOCLOPRAMIDEDI HYDROCHLORIDE INJECTION [Concomitant]
     Indication: Prophylaxis of nausea and vomiting
     Dates: start: 20211122, end: 20211122
  20. METOCLOPRAMIDEDI HYDROCHLORIDE INJECTION [Concomitant]
     Indication: Treatment delayed
     Dates: start: 20211122, end: 20211122
  21. ASCORBIC ACID [Concomitant]
     Active Substance: ASCORBIC ACID
     Indication: Nutritional supplementation
     Dates: start: 20211115, end: 20211116
  22. VITAMIN B6 [Concomitant]
     Active Substance: PYRIDOXINE HYDROCHLORIDE
     Indication: Nutritional supplementation
     Dates: start: 20211115, end: 20211116
  23. METOPROLOL TARTRATE [Concomitant]
     Active Substance: METOPROLOL TARTRATE
     Indication: Heart rate
     Dates: start: 20211116, end: 20211125
  24. METOPROLOL TARTRATE [Concomitant]
     Active Substance: METOPROLOL TARTRATE
     Indication: Treatment delayed
     Dates: start: 20211116, end: 20211125
  25. METOPROLOL TARTRATE [Concomitant]
     Active Substance: METOPROLOL TARTRATE
     Indication: Heart rate
     Dates: start: 20211127, end: 20211208
  26. METOPROLOL TARTRATE [Concomitant]
     Active Substance: METOPROLOL TARTRATE
     Indication: Treatment delayed
     Dates: start: 20211127, end: 20211208
  27. METOPROLOL TARTRATE [Concomitant]
     Active Substance: METOPROLOL TARTRATE
     Indication: Heart rate
     Dates: start: 20211115, end: 20211115
  28. METOPROLOL TARTRATE [Concomitant]
     Active Substance: METOPROLOL TARTRATE
     Indication: Treatment delayed
     Dates: start: 20211115, end: 20211115
  29. CODEINE PHOSPHATE [Concomitant]
     Active Substance: CODEINE PHOSPHATE
     Indication: Cough
     Dates: start: 20211117, end: 20211208
  30. ACETYLCYSTEINE EFFERVESCENT TABLETS [Concomitant]
     Indication: Cough
     Dates: start: 20211117, end: 20211128
  31. COENZYME Q10 [UBIDECARENONE ] [Concomitant]
     Indication: Cardiomyopathy
     Dates: start: 20211124, end: 20211208
  32. FUROSEMIDE [Concomitant]
     Active Substance: FUROSEMIDE
     Indication: Polyuria
     Dates: start: 20211125, end: 20211208
  33. SPIRONOLACTONE [Concomitant]
     Active Substance: SPIRONOLACTONE
     Indication: Polyuria
     Dates: start: 20211125, end: 20211208
  34. AVATROMBOPAG [Concomitant]
     Active Substance: AVATROMBOPAG
     Indication: Treatment delayed
     Dates: start: 20211127, end: 20211202
  35. MOSAPRIDE CITRATE [Concomitant]
     Active Substance: MOSAPRIDE CITRATE
     Indication: Protein total
     Dates: start: 20211127, end: 20211208
  36. METHYLPREDNISOLON E SODIUM SUCCINATE FOR INJECTION [Concomitant]
     Indication: Antiinflammatory therapy
     Dates: start: 20211128, end: 20211201
  37. FAMOTIDINE FOR INJECTION [Concomitant]
     Indication: Protein total
     Dates: start: 20211128, end: 20211208
  38. MAGNESIUM ASPARTATE\POTASSIUM ASPARTATE [Concomitant]
     Active Substance: MAGNESIUM ASPARTATE\POTASSIUM ASPARTATE
     Indication: Electrolyte substitution therapy
     Dates: start: 20211128, end: 20211208
  39. RECOMBINANT HUMANTHROMBOPOI ETIN INJECTION [Concomitant]
     Indication: Plateletcrit
     Dosage: 15000.00 U/1ML EVERY DAY
     Dates: start: 20211129, end: 20211205
  40. APREPITANT [Concomitant]
     Active Substance: APREPITANT
     Indication: Prophylaxis of nausea and vomiting
     Dates: start: 20211115, end: 20211115
  41. APREPITANT [Concomitant]
     Active Substance: APREPITANT
     Indication: Prophylaxis of nausea and vomiting
     Dates: start: 20211117, end: 20211117
  42. PALONOSETRON HYDROCHLORIDE [Concomitant]
     Active Substance: PALONOSETRON HYDROCHLORIDE
     Indication: Prophylaxis of nausea and vomiting
     Dates: start: 20211115, end: 20211115
  43. BUMETANIDE [Concomitant]
     Active Substance: BUMETANIDE
     Indication: Treatment delayed
     Dates: start: 20211115, end: 20211115
  44. LIDOCAINE HYDROCHLORIDE [Concomitant]
     Active Substance: LIDOCAINE HYDROCHLORIDE
     Indication: Anaesthesia
     Dates: start: 20211122, end: 20211122
  45. IRON SUCROSE [Concomitant]
     Active Substance: IRON SUCROSE
     Indication: Anaemia
     Dates: start: 20211127, end: 20211127
  46. IRON SUCROSE [Concomitant]
     Active Substance: IRON SUCROSE
     Indication: Plateletcrit
     Dates: start: 20211127, end: 20211127
  47. IRON SUCROSE [Concomitant]
     Active Substance: IRON SUCROSE
     Indication: Anaemia
     Dates: start: 20211129, end: 20211129
  48. IRON SUCROSE [Concomitant]
     Active Substance: IRON SUCROSE
     Indication: Plateletcrit
     Dates: start: 20211129, end: 20211129
  49. PROMETHAZINE [Concomitant]
     Active Substance: PROMETHAZINE HYDROCHLORIDE
     Indication: Treatment delayed
     Dates: start: 20211127, end: 20211127
  50. AMIODARONE HYDROCHLORIDE [Concomitant]
     Active Substance: AMIODARONE HYDROCHLORIDE
     Indication: Ventricular cisternostomy
     Dates: start: 20211127, end: 20211127
  51. AMIODARONE HYDROCHLORIDE [Concomitant]
     Active Substance: AMIODARONE HYDROCHLORIDE
     Indication: Ventricular cisternostomy
     Dates: start: 20211127, end: 20211127
  52. PEGYLATED RECOMBINANT HUMAN GRANULOCYTE COLONY-STIMULATIN G FACTOR ... [Concomitant]
     Indication: Plateletcrit
     Dates: start: 20211129, end: 20211129
  53. ERYTHROPOIETIN [Concomitant]
     Active Substance: ERYTHROPOIETIN
     Indication: Plateletcrit
     Dates: start: 20211129, end: 20211129
  54. COENZYME Q10 [Concomitant]
     Active Substance: DIETARY SUPPLEMENT\UBIDECARENONE
     Indication: Cardiomyopathy
     Dates: start: 20211124, end: 20211208
  55. FUROSEMIDE [Concomitant]
     Active Substance: FUROSEMIDE
     Indication: Prophylaxis
     Dates: start: 20211125, end: 20211208
  56. SPIRONOLACTONE [Concomitant]
     Active Substance: SPIRONOLACTONE
     Indication: Prophylaxis
     Dates: start: 20211125, end: 20211208
  57. METOPROLOL [Concomitant]
     Active Substance: METOPROLOL
     Indication: Prophylaxis
     Dates: start: 20211127, end: 20211208
  58. MOSAPRIDE CITRATE [Concomitant]
     Active Substance: MOSAPRIDE CITRATE
     Indication: Prophylaxis
     Dates: start: 20211127, end: 20211208
  59. METHYLPREDNISOLONE SODIUM SUCCINATE [Concomitant]
     Active Substance: METHYLPREDNISOLONE SODIUM SUCCINATE
     Indication: Prophylaxis
     Dates: start: 20211128, end: 20211201
  60. FAMOTIDINE [Concomitant]
     Active Substance: FAMOTIDINE
     Indication: Prophylaxis
     Dates: start: 20211128, end: 20211208
  61. PROMETHAZINE HYDROCHLORIDE [Concomitant]
     Active Substance: PROMETHAZINE HYDROCHLORIDE
     Indication: Nausea
     Dates: start: 20211127, end: 20211127
  62. AMIODARONE HYDROCHLORIDE [Concomitant]
     Active Substance: AMIODARONE HYDROCHLORIDE
     Indication: Prophylaxis
     Dates: start: 20211127, end: 20211127
  63. POTASSIUM ASPARTATE AND MAGNESIUM ASPARTATE [Concomitant]
     Indication: Blood electrolytes abnormal
     Dates: start: 20211128, end: 20211208

REACTIONS (2)
  - Platelet count decreased [Recovered/Resolved]
  - Myocarditis [Fatal]

NARRATIVE: CASE EVENT DATE: 20211124
